FAERS Safety Report 5488744-4 (Version None)
Quarter: 2007Q4

REPORT INFORMATION
  Report Type: 
  Country: None (occurrence: None)
  Receive Date: 20071017
  Receipt Date: 20071010
  Transmission Date: 20080405
  Serious: Yes (Other)
  Sender: FDA-Public Use
  Company Number: US-ROXANE LABORATORIES, INC-2007-BP-22456RO

PATIENT
  Sex: Male

DRUGS (7)
  1. METHOTREXATE [Suspect]
     Indication: OESOPHAGEAL ADENOCARCINOMA
     Dates: start: 19990101
  2. LEUCOVORIN CALCIUM [Suspect]
     Indication: OESOPHAGEAL ADENOCARCINOMA
     Dates: start: 19990101
  3. MITOMYCIN [Suspect]
     Indication: OESOPHAGEAL ADENOCARCINOMA
     Dates: start: 19990101
  4. PROLEUKIN [Suspect]
     Indication: OESOPHAGEAL ADENOCARCINOMA
     Dates: start: 19990101
  5. EPIRUBICIN [Suspect]
     Indication: OESOPHAGEAL ADENOCARCINOMA
     Dates: start: 19990101
  6. ETOPOSIDE [Suspect]
     Indication: OESOPHAGEAL ADENOCARCINOMA
     Dates: start: 19990101
  7. FLUOROURACIL [Suspect]
     Indication: OESOPHAGEAL ADENOCARCINOMA
     Dates: start: 19990101

REACTIONS (1)
  - MYELODYSPLASTIC SYNDROME [None]
